FAERS Safety Report 9118918 (Version 1)
Quarter: 2013Q1

REPORT INFORMATION
  Report Type: Spontaneous
  Country: FR (occurrence: FR)
  Receive Date: 20130226
  Receipt Date: 20130226
  Transmission Date: 20140127
  Serious: Yes (Other)
  Sender: FDA-Public Use
  Company Number: PHHY2013FR018383

PATIENT
  Age: 61 Year
  Sex: Female

DRUGS (5)
  1. FEMARA [Suspect]
     Indication: BREAST CANCER METASTATIC
     Dosage: 2.5 MG, UNK
     Route: 048
     Dates: start: 20120713, end: 20121119
  2. LEVOTHYROX [Concomitant]
     Dosage: UNK UKN, UNK
  3. ALDACTAZINE [Concomitant]
     Dosage: UNK UKN, UNK
  4. UVEDOSE [Concomitant]
     Dosage: UNK UKN, UNK
  5. AERIUS [Concomitant]
     Dosage: UNK UKN, UNK

REACTIONS (2)
  - Transferrin saturation increased [Not Recovered/Not Resolved]
  - Serum ferritin increased [Not Recovered/Not Resolved]
